FAERS Safety Report 10331444 (Version 2)
Quarter: 2014Q3

REPORT INFORMATION
  Report Type: Spontaneous
  Country: US (occurrence: None)
  Receive Date: 20140718
  Receipt Date: 20140725
  Transmission Date: 20150326
  Serious: Yes (Hospitalization)
  Sender: FDA-Public Use
  Company Number: 2014US0289

PATIENT
  Age: 3 Year
  Sex: Female
  Weight: 13.2 kg

DRUGS (1)
  1. ORFADIN [Suspect]
     Active Substance: NITISINONE
     Indication: TYROSINAEMIA
     Route: 048
     Dates: start: 20140403

REACTIONS (5)
  - Nephrolithiasis [None]
  - Vomiting [None]
  - Abdominal pain upper [None]
  - Haemorrhage [None]
  - Burning sensation [None]

NARRATIVE: CASE EVENT DATE: 20140703
